FAERS Safety Report 22136042 (Version 1)
Quarter: 2023Q1

REPORT INFORMATION
  Report Type: Spontaneous
  Country: AR (occurrence: AR)
  Receive Date: 20230324
  Receipt Date: 20230324
  Transmission Date: 20230417
  Serious: Yes (Death)
  Sender: FDA-Public Use
  Company Number: AR-OEPI8P-1024

PATIENT

DRUGS (3)
  1. NERLYNX [Suspect]
     Active Substance: NERATINIB
     Indication: HER2 positive breast cancer
     Dosage: THERAPY INTERVAL: DAILY
     Route: 048
     Dates: start: 20220901
  2. CAPECITABINE [Concomitant]
     Active Substance: CAPECITABINE
     Indication: Product used for unknown indication
     Dosage: THERAPY INTERVAL: DAILY
  3. TAMOXIFEN [Concomitant]
     Active Substance: TAMOXIFEN
     Indication: Product used for unknown indication
     Dosage: THERAPY INTERVAL: DAILY

REACTIONS (1)
  - HER2 positive breast cancer [Fatal]

NARRATIVE: CASE EVENT DATE: 20230315
